FAERS Safety Report 5682966-5 (Version None)
Quarter: 2008Q1

REPORT INFORMATION
  Report Type: 
  Country: None (occurrence: None)
  Receive Date: 20080327
  Receipt Date: 20080324
  Transmission Date: 20080703
  Serious: Yes (Other)
  Sender: FDA-Public Use
  Company Number: JP-MERCK-0803USA03215

PATIENT
  Age: 80 Year
  Sex: Female

DRUGS (2)
  1. FOSAMAX [Suspect]
     Indication: OSTEOPOROSIS
     Route: 048
     Dates: start: 20071001, end: 20080301
  2. [THERAPY UNSPECIFIED] [Concomitant]
     Route: 048

REACTIONS (3)
  - BONE MARROW FAILURE [None]
  - CATARACT [None]
  - VOMITING [None]
